FAERS Safety Report 5859959-8 (Version None)
Quarter: 2008Q3

REPORT INFORMATION
  Report Type: 
  Country: None (occurrence: None)
  Receive Date: 20080818
  Receipt Date: 20080625
  Transmission Date: 20090109
  Serious: No
  Sender: FDA-Public Use
  Company Number: TPA2008A00609

PATIENT
  Sex: Male
  Weight: 82.1011 kg

DRUGS (6)
  1. ROZEREM [Suspect]
     Indication: INSOMNIA
     Dosage: ONCE, PER ORAL
     Route: 048
  2. PRILOSEC [Concomitant]
  3. ATEMOLOL (ATENOLOL) [Concomitant]
  4. LIPITOR [Concomitant]
  5. ACETAMINOPHEN [Concomitant]
  6. MEN'S FORMULA MULTIVITAMIN (ERGOCALCIFEROL, ASCORBIC ACID, FOLIC ACID, [Concomitant]

REACTIONS (2)
  - ACTIVITIES OF DAILY LIVING IMPAIRED [None]
  - SEDATION [None]
